FAERS Safety Report 10821436 (Version 3)
Quarter: 2015Q2

REPORT INFORMATION
  Report Type: Spontaneous
  Country: US (occurrence: None)
  Receive Date: 20150213
  Receipt Date: 20150409
  Transmission Date: 20150821
  Serious: Yes (Hospitalization)
  Sender: FDA-Public Use
  Company Number: 1547846

PATIENT
  Age: 88 Year
  Sex: Female
  Weight: 102.51 kg

DRUGS (3)
  1. SALONPAS PAIN RELIEVING JET [Suspect]
     Active Substance: MENTHOL\METHYL SALICYLATE
     Indication: ANALGESIC THERAPY
     Dosage: TOPICAL APPLICATION NOS
     Route: 061
     Dates: start: 201412
  2. ANTI-HYPERTENSIVE (UNKNOWN) [Concomitant]
  3. CRESTOR [Concomitant]
     Active Substance: ROSUVASTATIN CALCIUM

REACTIONS (6)
  - Application site erythema [None]
  - Application site swelling [None]
  - Application site pain [None]
  - Pain in extremity [None]
  - Application site hypoaesthesia [None]
  - Cellulitis [None]

NARRATIVE: CASE EVENT DATE: 201412
